FAERS Safety Report 8083472-3 (Version None)
Quarter: 2012Q1

REPORT INFORMATION
  Report Type: 
  Country: None (occurrence: None)
  Receive Date: 20120127
  Receipt Date: 20110124
  Transmission Date: 20120608
  Serious: No
  Sender: FDA-Public Use
  Company Number: US-ABBOTT-11P-163-0700929-00

PATIENT
  Sex: Male
  Weight: 118.04 kg

DRUGS (15)
  1. HUMIRA [Suspect]
     Indication: PSORIASIS
     Dates: start: 20080101, end: 20090101
  2. LIPITOR [Concomitant]
     Indication: BLOOD CHOLESTEROL INCREASED
  3. ZANTAC [Concomitant]
     Indication: GASTROOESOPHAGEAL REFLUX DISEASE
     Dosage: 300 MG BID
  4. VESICARE [Concomitant]
     Indication: PROSTATOMEGALY
     Dosage: 10 MG AT HS
  5. CLOBETASOL SOLUTION [Concomitant]
     Indication: PSORIASIS
     Dosage: 0.5%
  6. WATER PILL [Concomitant]
     Indication: DIURETIC THERAPY
  7. HYDROXYZINE PMA [Concomitant]
     Indication: ANXIETY
     Dosage: 50 MG 1-2 TABS DAILY
  8. SPIREVA INHALER [Concomitant]
     Indication: RESPIRATORY DISORDER
  9. AMATISA [Concomitant]
     Indication: CONSTIPATION
  10. HUMIRA [Suspect]
     Indication: PSORIATIC ARTHROPATHY
     Dates: start: 20101101
  11. CLOBETASOL [Concomitant]
     Indication: PSORIASIS
  12. CLOBETASOL SHAMPOO [Concomitant]
     Indication: PSORIASIS
  13. NASONEX [Concomitant]
     Indication: SINUS DISORDER
  14. VERAPAMIL EXTENDED-RELEASE [Concomitant]
     Indication: HYPERTENSION
     Dosage: 180 MG TAB BID
  15. CLOBETASOL FOAM [Concomitant]
     Indication: PSORIASIS
     Dosage: 0.5% PRN

REACTIONS (5)
  - DRUG INEFFECTIVE [None]
  - BLOOD PRESSURE ABNORMAL [None]
  - INJECTION SITE WARMTH [None]
  - ARTHRALGIA [None]
  - INJECTION SITE ERYTHEMA [None]
